FAERS Safety Report 7910570-4 (Version None)
Quarter: 2011Q4

REPORT INFORMATION
  Report Type: 
  Country: None (occurrence: None)
  Receive Date: 20111111
  Receipt Date: 20111108
  Transmission Date: 20120403
  Serious: Yes (Death, Hospitalization, Disabling)
  Sender: FDA-Public Use
  Company Number: PHHY2011CO098763

PATIENT
  Sex: Male

DRUGS (1)
  1. SANDOSTATIN LAR [Suspect]
     Indication: NEUROENDOCRINE TUMOUR
     Dosage: 20 MG, UNK
     Route: 065
     Dates: start: 20110803, end: 20111002

REACTIONS (9)
  - PYREXIA [None]
  - DECREASED APPETITE [None]
  - DYSPNOEA [None]
  - LIVER DISORDER [None]
  - OEDEMA [None]
  - HYPOGLYCAEMIA [None]
  - DEATH [None]
  - HEPATIC ENZYME INCREASED [None]
  - MUSCULAR WEAKNESS [None]
